FAERS Safety Report 9254256 (Version 1)
Quarter: 2013Q2

REPORT INFORMATION
  Report Type: Spontaneous
  Country: JP (occurrence: JP)
  Receive Date: 20130425
  Receipt Date: 20130425
  Transmission Date: 20140414
  Serious: Yes (Other)
  Sender: FDA-Public Use
  Company Number: PHHY2013JP039572

PATIENT
  Age: 81 Year
  Sex: Female

DRUGS (5)
  1. DIOVAN [Suspect]
     Dosage: 40 MG, BID
     Route: 048
  2. DIOVAN [Suspect]
     Dosage: 40 MG, TID
     Route: 048
  3. PRONON [Suspect]
  4. PERDIPINE [Concomitant]
     Dosage: 10 MG, DAILY
  5. PERDIPINE [Concomitant]
     Dosage: 20 MG, BID
     Route: 048

REACTIONS (1)
  - Bradycardia [Unknown]
